FAERS Safety Report 10057096 (Version 1)
Quarter: 2014Q2

REPORT INFORMATION
  Report Type: Spontaneous
  Country: CA (occurrence: CA)
  Receive Date: 20140403
  Receipt Date: 20140403
  Transmission Date: 20141212
  Serious: Yes (Other)
  Sender: FDA-Public Use
  Company Number: CA-TEVA-473067USA

PATIENT
  Age: 57 Year
  Sex: Female

DRUGS (8)
  1. CARBOPLATIN [Suspect]
     Indication: PERITONEAL CARCINOMA METASTATIC
     Dosage: FOR 1 HOUR, EVERY 3 WEEKS
     Route: 065
  2. ONDANSETRON [Suspect]
     Indication: NAUSEA
     Dosage: TWICE DAILY FOR 2 DAYS FOLLOWING CHEMOTHERAPY
     Route: 065
  3. ONDANSETRON [Suspect]
     Indication: VOMITING
     Dosage: TWICE DAILY FOR 2 DAYS FOLLOWING CHEMOTHERAPY
     Route: 065
  4. PACLITAXEL [Suspect]
     Indication: PERITONEAL CARCINOMA METASTATIC
     Dosage: FOR 3 HOURS, EVERY 3 WEEKS
     Route: 042
  5. HUANG QI [Concomitant]
     Route: 065
  6. POTASSIUM PHOSPHATE [Concomitant]
     Route: 065
  7. PHOSPHORIC ACID [Concomitant]
     Dosage: TWICE DAILY FOR 3-5 DAYS FOLLOWING CHEMOTHERAPY
     Route: 065
  8. SODIUM CHLORIDE [Concomitant]
     Dosage: TWICE DAILY FOR 10 DAYS FOLLOWING CHEMOTHERAPY
     Route: 065

REACTIONS (21)
  - Neutropenia [Unknown]
  - Thrombocytopenia [Unknown]
  - Constipation [Unknown]
  - Anaemia [Unknown]
  - Decreased appetite [Unknown]
  - Fatigue [Unknown]
  - Asthenia [Unknown]
  - Erythema [Unknown]
  - Muscular weakness [Unknown]
  - Gait disturbance [Unknown]
  - Dizziness [Unknown]
  - Insomnia [Unknown]
  - Hypoaesthesia [Unknown]
  - Peripheral coldness [Unknown]
  - Contusion [Unknown]
  - Pain in extremity [Unknown]
  - Abdominal pain [Unknown]
  - Nausea [Unknown]
  - Oral candidiasis [Unknown]
  - Ageusia [Unknown]
  - Alopecia [Unknown]
